FAERS Safety Report 4342046-8 (Version None)
Quarter: 2004Q2

REPORT INFORMATION
  Report Type: 
  Country: None (occurrence: None)
  Receive Date: 20040415
  Receipt Date: 20040406
  Transmission Date: 20050107
  Serious: Yes (Hospitalization, Other)
  Sender: FDA-Public Use
  Company Number: US067576

PATIENT
  Age: 79 Year
  Sex: Male
  Weight: 100 kg

DRUGS (14)
  1. ARANESP [Suspect]
     Indication: RENAL FAILURE CHRONIC
     Dosage: 100 MCG, 1 IN 2 WEEKS, SC
     Route: 058
     Dates: start: 20031003
  2. EPOGEN [Suspect]
     Indication: RENAL FAILURE CHRONIC
     Dosage: 10000 U
     Dates: start: 20030815, end: 20031003
  3. CYCLOSPORINE [Concomitant]
  4. MYCOPHENOLATE MOFETIL [Concomitant]
  5. PREDNISONE [Concomitant]
  6. WARFARIN SODIUM [Concomitant]
  7. CLOPIDOGREL BISULFATE [Concomitant]
  8. PANTOPRAZOLE SODIUM [Concomitant]
  9. METOPROLOL SUCCINATE [Concomitant]
  10. AMLODIPINE BESYLATE [Concomitant]
  11. ATORVASTATIN CALCIUM [Concomitant]
  12. ISOSORBIDE MONONITRATE [Concomitant]
  13. ROSIGLITAZONE MALEATE [Concomitant]
  14. NOVOLIN 70/30 [Concomitant]

REACTIONS (3)
  - BONE MARROW DEPRESSION [None]
  - CHEST PAIN [None]
  - THERAPEUTIC RESPONSE DECREASED [None]
